FAERS Safety Report 8594616 (Version 2)
Quarter: 2012Q4

REPORT INFORMATION
  Report Type: 
  Country: DK (occurrence: DK)
  Receive Date: 20120604
  Receipt Date: 20121016
  Transmission Date: 20130627
  Serious: Yes (Other)
  Sender: FDA-Public Use
  Company Number: DK-GLAXOSMITHKLINE-B0805278A

PATIENT
  Age: 57 Year
  Sex: Male
  Weight: 78 kg

DRUGS (1)
  1. DERMOVAT [Suspect]
     Indication: ECZEMA
     Route: 065
     Dates: start: 2007, end: 2011

REACTIONS (2)
  - Chorioretinopathy [Not Recovered/Not Resolved]
  - Overdose [Unknown]
